FAERS Safety Report 13391071 (Version 3)
Quarter: 2017Q3

REPORT INFORMATION
  Report Type: Report from Study
  Country: JP (occurrence: JP)
  Receive Date: 20170331
  Receipt Date: 20170912
  Transmission Date: 20171127
  Serious: Yes (Hospitalization)
  Sender: FDA-Public Use
  Company Number: JP-JNJFOC-20170330376

PATIENT
  Age: 13 Year
  Sex: Male
  Weight: 47.85 kg

DRUGS (10)
  1. ATARAX [Concomitant]
     Active Substance: HYDROXYZINE HYDROCHLORIDE
     Indication: SEDATION
     Route: 042
     Dates: start: 20160606, end: 20160606
  2. REMICADE [Suspect]
     Active Substance: INFLIXIMAB
     Indication: KAWASAKI^S DISEASE
     Route: 042
     Dates: start: 20160605, end: 20160605
  3. CICLOSPORIN [Concomitant]
     Active Substance: CYCLOSPORINE
     Indication: KAWASAKI^S DISEASE
     Route: 048
     Dates: start: 20160610, end: 20160615
  4. CALONAL [Concomitant]
     Active Substance: ACETAMINOPHEN
     Route: 048
     Dates: start: 20160616, end: 20160616
  5. BUFFERIN [Concomitant]
     Active Substance: ASPIRIN
     Indication: KAWASAKI^S DISEASE
     Route: 048
     Dates: start: 20160616
  6. LASIX [Concomitant]
     Active Substance: FUROSEMIDE
     Indication: PROPHYLAXIS
     Route: 042
     Dates: start: 20160605
  7. ISOZOL [Concomitant]
     Active Substance: THIAMYLAL SODIUM
     Indication: SEDATION
     Route: 042
     Dates: start: 20160617
  8. MEROPENEM. [Suspect]
     Active Substance: MEROPENEM
     Indication: PHARYNGEAL ABSCESS
     Route: 041
     Dates: start: 201606
  9. PENTAZOCINE LACTATE [Concomitant]
     Active Substance: PENTAZOCINE LACTATE
     Indication: ANALGESIC THERAPY
     Route: 042
     Dates: start: 20160606, end: 20160606
  10. HUMAN NORMAL IMMUNOGLOBULIN [Concomitant]
     Active Substance: HUMAN IMMUNOGLOBULIN G
     Indication: KAWASAKI^S DISEASE
     Route: 042
     Dates: start: 20160610, end: 20160611

REACTIONS (3)
  - Headache [Recovered/Resolved]
  - Juvenile idiopathic arthritis [Recovering/Resolving]
  - Enterocolitis [Recovered/Resolved]

NARRATIVE: CASE EVENT DATE: 20160607
